FAERS Safety Report 23590430 (Version 2)
Quarter: 2024Q1

REPORT INFORMATION
  Report Type: Report from Study
  Country: US (occurrence: US)
  Receive Date: 20240304
  Receipt Date: 20240326
  Transmission Date: 20240410
  Serious: Yes (Other)
  Sender: FDA-Public Use
  Company Number: US-TAKEDA-2024TUS019514

PATIENT
  Age: 37 Year
  Sex: Female

DRUGS (1)
  1. VEDOLIZUMAB [Suspect]
     Active Substance: VEDOLIZUMAB
     Indication: Colitis ulcerative
     Dosage: 300 MILLIGRAM
     Route: 042
     Dates: start: 20240221

REACTIONS (6)
  - Haematochezia [Unknown]
  - Joint swelling [Recovered/Resolved]
  - Sinus headache [Recovered/Resolved]
  - Peripheral swelling [Recovered/Resolved]
  - Musculoskeletal stiffness [Unknown]
  - Fatigue [Unknown]

NARRATIVE: CASE EVENT DATE: 20240221
